FAERS Safety Report 6230724-5 (Version None)
Quarter: 2009Q2

REPORT INFORMATION
  Report Type: 
  Country: None (occurrence: None)
  Receive Date: 20090611
  Receipt Date: 20090611
  Transmission Date: 20091009
  Serious: Yes (Other)
  Sender: FDA-Public Use
  Company Number: None

PATIENT
  Sex: Female

DRUGS (1)
  1. PRIMIDONE [Suspect]
     Indication: EPILEPSY
     Dosage: 1 PILL 4 X A DAY 8100AM; 12:00NOON; 4:00PM; 8:00 PM, STARTING 5-7-09 DOCTOR HAD ME TO TO 3 A DAY

REACTIONS (14)
  - ALOPECIA [None]
  - DISTURBANCE IN ATTENTION [None]
  - DIZZINESS [None]
  - DRY MOUTH [None]
  - DRY SKIN [None]
  - GINGIVAL BLEEDING [None]
  - MEMORY IMPAIRMENT [None]
  - NAUSEA [None]
  - POOR QUALITY SLEEP [None]
  - PRODUCT SUBSTITUTION ISSUE [None]
  - PRURITUS [None]
  - STEVENS-JOHNSON SYNDROME [None]
  - TENSION [None]
  - VEIN DISORDER [None]
